FAERS Safety Report 9301331 (Version 1)
Quarter: 2013Q2

REPORT INFORMATION
  Report Type: Spontaneous
  Country: US (occurrence: US)
  Receive Date: 20130521
  Receipt Date: 20130521
  Transmission Date: 20140414
  Serious: Yes (Other)
  Sender: FDA-Public Use
  Company Number: US-FRI-1000045124

PATIENT
  Age: 64 Year
  Sex: Female

DRUGS (10)
  1. SAVELLA [Suspect]
     Indication: FIBROMYALGIA
     Dosage: 12.5 MG
     Route: 048
     Dates: start: 2011, end: 2011
  2. SAVELLA [Suspect]
     Dosage: 25 MG
     Route: 048
     Dates: start: 2011, end: 2011
  3. SAVELLA [Suspect]
     Dosage: 50 MG
     Route: 048
     Dates: start: 2011, end: 2011
  4. SAVELLA [Suspect]
     Indication: FIBROMYALGIA
     Dosage: 100 MG
     Route: 048
     Dates: start: 2011, end: 20130228
  5. SAVELLA [Suspect]
     Indication: FIBROMYALGIA
     Dosage: 100 MG
     Route: 048
     Dates: start: 20130304
  6. TRAZODONE [Concomitant]
     Indication: INSOMNIA
     Dosage: 100 MG
  7. LEVOXYL [Concomitant]
     Indication: HYPOTHYROIDISM
     Dosage: 88 MCG
  8. LEXAPRO [Concomitant]
     Indication: DEPRESSION
     Dosage: 10 MG
  9. LEXAPRO [Concomitant]
     Indication: INSOMNIA
  10. TYLENOL [Concomitant]
     Indication: PAIN
     Dosage: PRN

REACTIONS (4)
  - Spinal column stenosis [Recovering/Resolving]
  - Myoclonus [Recovered/Resolved]
  - Headache [Not Recovered/Not Resolved]
  - Feeling abnormal [Recovered/Resolved]
